FAERS Safety Report 4918133-X (Version None)
Quarter: 2006Q1

REPORT INFORMATION
  Report Type: 
  Country: None (occurrence: None)
  Receive Date: 20060221
  Receipt Date: 20051214
  Transmission Date: 20060701
  Serious: Yes (Other)
  Sender: FDA-Public Use
  Company Number: US-MERCK-0512USA02354

PATIENT
  Age: 74 Year
  Sex: Female

DRUGS (8)
  1. VIOXX [Suspect]
     Indication: JOINT DISLOCATION
     Route: 048
     Dates: start: 20010108
  2. VIOXX [Suspect]
     Route: 048
     Dates: start: 20020801
  3. VIOXX [Suspect]
     Route: 048
     Dates: start: 20040415
  4. VIOXX [Suspect]
     Route: 048
     Dates: start: 20040505
  5. VIOXX [Suspect]
     Indication: ARTHRALGIA
     Route: 048
     Dates: start: 20010108
  6. VIOXX [Suspect]
     Route: 048
     Dates: start: 20020801
  7. VIOXX [Suspect]
     Route: 048
     Dates: start: 20040415
  8. VIOXX [Suspect]
     Route: 048
     Dates: start: 20040505

REACTIONS (11)
  - ARTERIOSCLEROSIS [None]
  - ARTHROPATHY [None]
  - CEREBROVASCULAR ACCIDENT [None]
  - FALL [None]
  - HAEMARTHROSIS [None]
  - HAEMORRHAGIC CYST [None]
  - JOINT EFFUSION [None]
  - PATELLOFEMORAL PAIN SYNDROME [None]
  - SYNOVIAL CYST [None]
  - TENOSYNOVITIS STENOSANS [None]
  - TRIGGER FINGER [None]
